FAERS Safety Report 12950889 (Version 1)
Quarter: 2016Q4

REPORT INFORMATION
  Report Type: Spontaneous
  Country: US (occurrence: US)
  Receive Date: 20161116
  Receipt Date: 20161116
  Transmission Date: 20170207
  Serious: No
  Sender: FDA-Public Use
  Company Number: US-ASTRAZENECA-2016SF18780

PATIENT
  Age: 21 Year
  Sex: Female

DRUGS (2)
  1. VICODIN [Concomitant]
     Active Substance: ACETAMINOPHEN\HYDROCODONE BITARTRATE
     Indication: PAIN
  2. MOVANTIK [Suspect]
     Active Substance: NALOXEGOL OXALATE
     Dosage: 25.0MG ONCE/SINGLE ADMINISTRATION
     Route: 048

REACTIONS (4)
  - Hyperhidrosis [Unknown]
  - Withdrawal syndrome [Unknown]
  - Pain [Unknown]
  - Sleep disorder [Unknown]
